FAERS Safety Report 5774200-2 (Version None)
Quarter: 2008Q2

REPORT INFORMATION
  Report Type: 
  Country: None (occurrence: None)
  Receive Date: 20080616
  Receipt Date: 20080602
  Transmission Date: 20081010
  Serious: Yes (Other)
  Sender: FDA-Public Use
  Company Number: JP-GENENTECH-249132

PATIENT
  Sex: Male

DRUGS (8)
  1. BEVACIZUMAB [Suspect]
     Indication: COLON CANCER
     Dosage: 10 MG/KG, UNK
     Route: 042
     Dates: start: 20070613, end: 20070717
  2. OXALIPLATIN [Suspect]
     Indication: COLON CANCER
     Dosage: 116 MG/M2, UNK
     Route: 042
     Dates: start: 20070613, end: 20070617
  3. FLUOROURACIL [Suspect]
     Indication: COLON CANCER
     Dosage: 889 MG/M2, UNK
     Route: 042
     Dates: start: 20070613, end: 20070718
  4. ISOVORIN [Concomitant]
     Indication: DRUG USE FOR UNKNOWN INDICATION
     Dates: start: 20070613, end: 20070718
  5. LOXONIN [Concomitant]
     Indication: DRUG USE FOR UNKNOWN INDICATION
     Dosage: UNK, UNK
     Dates: start: 20070612
  6. URSO 250 [Concomitant]
     Indication: DRUG USE FOR UNKNOWN INDICATION
     Dates: start: 20070612
  7. MUCOSTA [Concomitant]
     Indication: DRUG USE FOR UNKNOWN INDICATION
     Dosage: UNK, UNK
     Dates: start: 20070612
  8. FAMOTIDINE [Concomitant]
     Indication: DRUG USE FOR UNKNOWN INDICATION
     Dosage: UNK, UNK
     Dates: start: 20070612, end: 20070828

REACTIONS (1)
  - HYPERBILIRUBINAEMIA [None]
